FAERS Safety Report 10086776 (Version 3)
Quarter: 2014Q2

REPORT INFORMATION
  Report Type: Report from Study
  Country: US (occurrence: US)
  Receive Date: 20140418
  Receipt Date: 20140617
  Transmission Date: 20141212
  Serious: Yes (Congenital Anomaly, Other)
  Sender: FDA-Public Use
  Company Number: US-GILEAD-2014-0099536

PATIENT
  Sex: Female

DRUGS (10)
  1. EMTRICITABINE/TENOFOVIR DISOPROXIL FUMARATE [Suspect]
     Indication: HIV INFECTION
     Dosage: 1 UNK, UNK
     Route: 064
     Dates: end: 20131014
  2. RALTEGRAVIR [Suspect]
     Indication: HIV INFECTION
     Dosage: 800 MG, UNK
     Route: 064
     Dates: end: 20130723
  3. RITONAVIR [Suspect]
     Indication: HIV INFECTION
     Dosage: 100 MG, UNK
     Route: 064
     Dates: start: 20130723, end: 20131014
  4. ATAZANAVIR SULFATE [Suspect]
     Indication: HIV INFECTION
     Dosage: 300 MG, QD
     Route: 064
     Dates: start: 20130723, end: 20131014
  5. ZIDOVUDINE [Suspect]
     Indication: HIV INFECTION
     Dosage: 1 MG/KG, UNK
     Route: 064
     Dates: start: 20131014, end: 20131014
  6. ZIDOVUDINE [Suspect]
     Dosage: 1 MG/KG, UNK
     Route: 064
     Dates: start: 20131014, end: 20131014
  7. METRONIDAZOLE [Concomitant]
     Indication: PRODUCT USED FOR UNKNOWN INDICATION
     Dosage: UNK
     Route: 064
     Dates: end: 20131014
  8. PENTAMIDINE [Concomitant]
     Indication: PRODUCT USED FOR UNKNOWN INDICATION
     Dosage: UNK
     Route: 064
     Dates: end: 20131014
  9. FOLATE [Concomitant]
  10. SULFAMETHOXAZOLE AND TRIMETHOPRIM [Concomitant]

REACTIONS (3)
  - Transposition of the great vessels [Unknown]
  - Atrial septal defect [Unknown]
  - Premature baby [Unknown]
